FAERS Safety Report 6699565-9 (Version None)
Quarter: 2010Q2

REPORT INFORMATION
  Report Type: 
  Country: None (occurrence: None)
  Receive Date: 20100427
  Receipt Date: 20100427
  Transmission Date: 20101027
  Serious: Yes (Life-Threatening, Other)
  Sender: FDA-Public Use
  Company Number: None

PATIENT
  Age: 51 Year
  Sex: Male
  Weight: 96.1626 kg

DRUGS (2)
  1. AMLODIPINE BESYLATE AND BENAZEPRIL HCL [Suspect]
     Indication: BLOOD PRESSURE MANAGEMENT
     Dosage: ONCE DAILY PO
     Route: 048
     Dates: start: 20100417, end: 20100417
  2. LOTREL [Suspect]

REACTIONS (7)
  - CONVULSION [None]
  - DYSPNOEA [None]
  - FEAR OF DEATH [None]
  - PRODUCT QUALITY ISSUE [None]
  - PRODUCT SUBSTITUTION ISSUE [None]
  - TINNITUS [None]
  - VERTIGO [None]
